FAERS Safety Report 24076916 (Version 2)
Quarter: 2024Q3

REPORT INFORMATION
  Report Type: Spontaneous
  Country: GB (occurrence: GB)
  Receive Date: 20240711
  Receipt Date: 20240819
  Transmission Date: 20241016
  Serious: Yes (Other)
  Sender: ROCHE
  Company Number: GB-ROCHE-10000016111

PATIENT
  Age: 69 Year
  Sex: Male

DRUGS (2)
  1. TECENTRIQ [Suspect]
     Active Substance: ATEZOLIZUMAB
     Indication: Hepatocellular carcinoma
     Route: 065
  2. AVASTIN [Suspect]
     Active Substance: BEVACIZUMAB
     Indication: Hepatocellular carcinoma
     Route: 065
     Dates: start: 202107

REACTIONS (9)
  - Chronic hepatitis C [Unknown]
  - Hepatic cirrhosis [Unknown]
  - Proteinuria [Unknown]
  - Rash [Recovered/Resolved]
  - Mouth ulceration [Recovered/Resolved]
  - Blister rupture [Recovered/Resolved]
  - Eosinophil count increased [Unknown]
  - C-reactive protein increased [Unknown]
  - Pemphigoid [Unknown]
